FAERS Safety Report 15565590 (Version 1)
Quarter: 2018Q4

REPORT INFORMATION
  Report Type: Other
  Country: DK (occurrence: DK)
  Receive Date: 20181030
  Receipt Date: 20181030
  Transmission Date: 20190205
  Serious: Yes (Other)
  Sender: FDA-Public Use
  Company Number: DK-STRIDES ARCOLAB LIMITED-2018SP009265

PATIENT
  Age: 67 Year
  Sex: Female
  Weight: 107 kg

DRUGS (2)
  1. VANCOMYCIN [Suspect]
     Active Substance: VANCOMYCIN
     Indication: LOCALISED INFECTION
     Dosage: 2 G, PER DAY
     Route: 042
     Dates: start: 20180929
  2. MEROPENEM. [Concomitant]
     Active Substance: MEROPENEM
     Indication: LOCALISED INFECTION
     Dosage: DOSIS: UKENDT. STYRKE: UKENDT. ()
     Route: 065
     Dates: start: 20180926

REACTIONS (2)
  - Mucosal inflammation [Not Recovered/Not Resolved]
  - Thrombocytopenia [Unknown]

NARRATIVE: CASE EVENT DATE: 20181007
